FAERS Safety Report 5476849-3 (Version None)
Quarter: 2007Q4

REPORT INFORMATION
  Report Type: 
  Country: None (occurrence: None)
  Receive Date: 20071004
  Receipt Date: 20070924
  Transmission Date: 20080405
  Serious: Yes (Hospitalization)
  Sender: FDA-Public Use
  Company Number: GB-ROCHE-508408

PATIENT
  Age: 51 Year
  Sex: Female
  Weight: 149.8 kg

DRUGS (2)
  1. XENICAL [Suspect]
     Indication: OBESITY
     Route: 048
     Dates: start: 20070418
  2. UNSPECIFIED MEDICATIONS [Concomitant]

REACTIONS (1)
  - INTESTINAL OBSTRUCTION [None]
